FAERS Safety Report 6671589-7 (Version None)
Quarter: 2010Q2

REPORT INFORMATION
  Report Type: 
  Country: None (occurrence: None)
  Receive Date: 20100407
  Receipt Date: 20100331
  Transmission Date: 20101027
  Serious: Yes (Hospitalization)
  Sender: FDA-Public Use
  Company Number: JP-ALLERGAN-0912900US

PATIENT
  Age: 22 Year
  Sex: Male
  Weight: 20 kg

DRUGS (7)
  1. BOTOX [Suspect]
     Indication: CEREBRAL PALSY
     Dosage: 100 UNITS, SINGLE
     Route: 030
     Dates: start: 20090907, end: 20090907
  2. PHENOBARBITAL TAB [Concomitant]
     Indication: TORTICOLLIS
     Dosage: UNK
     Dates: start: 20090909
  3. CARCOPA [Concomitant]
     Indication: TORTICOLLIS
  4. FAMOTIDINE [Concomitant]
     Indication: GASTROINTESTINAL MOTILITY DISORDER
     Dosage: UNK
     Dates: start: 20090908
  5. DANTRIUM [Concomitant]
     Indication: TORTICOLLIS
     Dosage: UNK
     Dates: start: 20090909
  6. TIZANIDINE HCL [Concomitant]
     Indication: TORTICOLLIS
     Dosage: UNK
     Dates: start: 20090908
  7. GASMOTIN [Concomitant]
     Indication: GASTROINTESTINAL MOTILITY DISORDER
     Dosage: UNK
     Dates: start: 20090908

REACTIONS (9)
  - ACUTE HEPATIC FAILURE [None]
  - ALTERED STATE OF CONSCIOUSNESS [None]
  - BLOOD CREATINE PHOSPHOKINASE INCREASED [None]
  - DEHYDRATION [None]
  - DISSEMINATED INTRAVASCULAR COAGULATION [None]
  - HYPOVOLAEMIC SHOCK [None]
  - NEUROLEPTIC MALIGNANT SYNDROME [None]
  - PYREXIA [None]
  - RENAL FAILURE [None]
